FAERS Safety Report 4420478-7 (Version None)
Quarter: 2004Q3

REPORT INFORMATION
  Report Type: 
  Country: None (occurrence: None)
  Receive Date: 20040809
  Receipt Date: 20040303
  Transmission Date: 20050211
  Serious: No
  Sender: FDA-Public Use
  Company Number: US-GLAXOSMITHKLINE-A0501708A

PATIENT
  Sex: Male

DRUGS (1)
  1. PAXIL CR [Suspect]
     Route: 048
     Dates: start: 20030910, end: 20040201

REACTIONS (7)
  - ANAEMIA [None]
  - ANOREXIA [None]
  - ASTHENIA [None]
  - FEELING OF DESPAIR [None]
  - INSOMNIA [None]
  - MALAISE [None]
  - PAIN [None]
